FAERS Safety Report 25089596 (Version 3)
Quarter: 2025Q3

REPORT INFORMATION
  Report Type: Spontaneous
  Country: US (occurrence: US)
  Receive Date: 20250318
  Receipt Date: 20250916
  Transmission Date: 20251021
  Serious: No
  Sender: BLUEPRINT MEDICINES
  Company Number: US-Blueprint Medicines Corporation-2025-AER-00482

PATIENT
  Age: 74 Year
  Sex: Male

DRUGS (4)
  1. AYVAKIT [Suspect]
     Active Substance: AVAPRITINIB
     Indication: Mastocytic leukaemia
     Route: 065
     Dates: start: 20240229
  2. AYVAKIT [Suspect]
     Active Substance: AVAPRITINIB
     Route: 065
  3. AYVAKIT [Suspect]
     Active Substance: AVAPRITINIB
     Route: 065
     Dates: start: 20240229
  4. AYVAKIT [Suspect]
     Active Substance: AVAPRITINIB
     Route: 065
     Dates: start: 20240229

REACTIONS (9)
  - Tryptase increased [Unknown]
  - Flatulence [Unknown]
  - Erythema [Unknown]
  - Memory impairment [Unknown]
  - Faeces soft [Unknown]
  - Dyspepsia [Unknown]
  - Red blood cell count abnormal [Unknown]
  - White blood cell count abnormal [Unknown]
  - Alanine aminotransferase abnormal [Unknown]
